FAERS Safety Report 9914045 (Version 2)
Quarter: 2014Q1

REPORT INFORMATION
  Report Type: Spontaneous
  Country: PT (occurrence: PT)
  Receive Date: 20140220
  Receipt Date: 20140227
  Transmission Date: 20141002
  Serious: Yes (Hospitalization)
  Sender: FDA-Public Use
  Company Number: PT-B.I. PHARMACEUTICALS,INC./RIDGEFIELD-2014-BI-07583PO

PATIENT
  Sex: Male

DRUGS (5)
  1. PRADAXA [Suspect]
     Indication: ATRIAL FIBRILLATION
     Dosage: 220 MG
     Route: 065
     Dates: start: 201311, end: 201402
  2. TICLOPIDINE [Concomitant]
     Route: 065
     Dates: start: 201402
  3. ACE- ANGIOTENSIN CONVERTING ENZYME INHIBITOR (UNSPECIFIED) [Concomitant]
     Route: 065
  4. SPIRONOLACTONE [Concomitant]
     Route: 065
  5. STATIN [Concomitant]
     Route: 065

REACTIONS (6)
  - Skin reaction [Recovered/Resolved]
  - Oedema [Recovered/Resolved]
  - Cardiac failure [Recovered/Resolved]
  - Pulmonary congestion [Recovered/Resolved]
  - Orthopnoea [Recovered/Resolved]
  - Renal impairment [Recovered/Resolved]
